FAERS Safety Report 7162892-5 (Version None)
Quarter: 2010Q4

REPORT INFORMATION
  Report Type: 
  Country: None (occurrence: None)
  Receive Date: 20101215
  Receipt Date: 20100118
  Transmission Date: 20110411
  Serious: Yes (Congenital Anomaly)
  Sender: FDA-Public Use
  Company Number: FR-PFIZER INC-2010006270

PATIENT
  Sex: Female

DRUGS (13)
  1. LYRICA [Suspect]
     Dosage: 1 DF, 3X/DAY
     Route: 064
     Dates: end: 20090401
  2. DOXIUM [Suspect]
     Dosage: 1 DF, 3X/DAY
     Route: 064
     Dates: end: 20090401
  3. DICYNONE [Suspect]
     Dosage: 1 DF, 1X/DAY
     Route: 064
     Dates: end: 20090401
  4. DEROXAT [Suspect]
     Dosage: 1 DF, 2X/DAY
     Route: 064
     Dates: end: 20090401
  5. OLMESARTAN MEDOXOMIL [Suspect]
     Dosage: UNK
     Route: 064
     Dates: end: 20090401
  6. TERCIAN [Suspect]
     Dosage: UNK
     Route: 064
  7. LYSANXIA [Suspect]
     Dosage: 1 DF, 3X/DAY
     Route: 064
     Dates: end: 20090401
  8. SEROPRAM [Suspect]
     Dosage: UNK
     Route: 064
     Dates: end: 20090401
  9. DAFALGAN [Concomitant]
  10. OROCAL [Concomitant]
     Dosage: 500 ONCE DAILY
  11. DEXERYL ^PIERRE FABRE^ [Concomitant]
  12. INSULIN GLULISINE [Concomitant]
     Dosage: UNK
  13. POTASSIUM IODIDE [Concomitant]
     Dosage: UNK

REACTIONS (3)
  - ATRIAL SEPTAL DEFECT [None]
  - CONGENITAL MUSCULOSKELETAL ANOMALY [None]
  - DRUG EXPOSURE DURING PREGNANCY [None]
